FAERS Safety Report 5509749-0 (Version None)
Quarter: 2007Q4

REPORT INFORMATION
  Report Type: 
  Country: None (occurrence: None)
  Receive Date: 20071107
  Receipt Date: 20071107
  Transmission Date: 20080405
  Serious: Yes (Hospitalization)
  Sender: FDA-Public Use
  Company Number: None

PATIENT
  Age: 47 Year
  Sex: Male
  Weight: 77.1115 kg

DRUGS (13)
  1. BEVACIZUMAB [Suspect]
     Indication: ANAPLASTIC ASTROCYTOMA
     Dosage: 10MG/KG I.V. Q 2WEEKS
     Route: 042
     Dates: start: 20070807
  2. BEVACIZUMAB [Suspect]
     Indication: ANAPLASTIC ASTROCYTOMA
     Dosage: 10MG/KG I.V. Q 2WEEKS
     Route: 042
     Dates: start: 20070821
  3. BEVACIZUMAB [Suspect]
     Indication: ANAPLASTIC ASTROCYTOMA
     Dosage: 10MG/KG I.V. Q 2WEEKS
     Route: 042
     Dates: start: 20070904
  4. BEVACIZUMAB [Suspect]
     Indication: ANAPLASTIC ASTROCYTOMA
     Dosage: 10MG/KG I.V. Q 2WEEKS
     Route: 042
     Dates: start: 20070918
  5. ETOPOSIDE [Suspect]
     Dosage: 100MG P.O. QD 21DAYS
     Route: 048
     Dates: start: 20070807
  6. ETOPOSIDE [Suspect]
     Dosage: 100MG P.O. QD 21DAYS
     Route: 048
     Dates: start: 20070827
  7. ETOPOSIDE [Suspect]
     Dosage: 100MG P.O. QD 21DAYS
     Route: 048
     Dates: start: 20070904
  8. ETOPOSIDE [Suspect]
     Dosage: 100MG P.O. QD 21DAYS
     Route: 048
     Dates: start: 20070924
  9. CALCIUM [Concomitant]
  10. MULTI-VITAMIN [Concomitant]
  11. KEPPRA [Concomitant]
  12. DECADRON [Concomitant]
  13. CAMPAZINE [Concomitant]

REACTIONS (5)
  - DIARRHOEA [None]
  - HEADACHE [None]
  - MUSCULOSKELETAL STIFFNESS [None]
  - PNEUMOCYSTIS JIROVECI PNEUMONIA [None]
  - SWELLING FACE [None]
